FAERS Safety Report 9122919 (Version 1)
Quarter: 2013Q1

REPORT INFORMATION
  Report Type: Spontaneous
  Country: US (occurrence: US)
  Receive Date: 20130115
  Receipt Date: 20130115
  Transmission Date: 20140127
  Serious: Yes (Other)
  Sender: FDA-Public Use
  Company Number: US-009507513-1301USA002093

PATIENT
  Age: 7 Year
  Sex: Male

DRUGS (2)
  1. SINGULAIR [Suspect]
     Indication: ATTENTION DEFICIT/HYPERACTIVITY DISORDER
  2. FOCALIN XR [Suspect]
     Dosage: 5 MG, QD
     Route: 048

REACTIONS (4)
  - Insomnia [Unknown]
  - Heart rate increased [Unknown]
  - Eating disorder [Unknown]
  - Depressed mood [Unknown]
